FAERS Safety Report 7224297-8 (Version None)
Quarter: 2011Q1

REPORT INFORMATION
  Report Type: 
  Country: None (occurrence: None)
  Receive Date: 20110113
  Receipt Date: 20110107
  Transmission Date: 20110831
  Serious: Yes (Other)
  Sender: FDA-Public Use
  Company Number: US-PFIZER INC-2009251454

PATIENT
  Sex: Male
  Weight: 81.63 kg

DRUGS (9)
  1. DETROL LA [Suspect]
     Indication: URINARY INCONTINENCE
  2. GLIPIZIDE [Concomitant]
     Indication: DIABETES MELLITUS
     Dosage: UNK
  3. LIPITOR [Concomitant]
  4. METAGLIP [Concomitant]
  5. TOVIAZ [Suspect]
     Indication: HYPERTONIC BLADDER
     Dosage: 8 MG, 1X/DAY
     Route: 048
     Dates: start: 20090701
  6. TOVIAZ [Suspect]
     Dosage: 4 MG, 1X/DAY
  7. METFORMIN [Concomitant]
     Indication: DIABETES MELLITUS
     Dosage: UNK
  8. DETROL LA [Suspect]
     Indication: HYPERTONIC BLADDER
     Dosage: UNK
  9. TOVIAZ [Suspect]
     Dosage: 4 MG, UNK
     Route: 048
     Dates: start: 20101201

REACTIONS (3)
  - ERYTHEMA [None]
  - DRUG INEFFECTIVE [None]
  - SURGERY [None]
